FAERS Safety Report 19082899 (Version 1)
Quarter: 2021Q2

REPORT INFORMATION
  Report Type: Spontaneous
  Country: AU (occurrence: AU)
  Receive Date: 20210401
  Receipt Date: 20210401
  Transmission Date: 20210717
  Serious: Yes (Hospitalization, Other)
  Sender: FDA-Public Use
  Company Number: AU-B.I. PHARMACEUTICALS,INC./RIDGEFIELD-2021-BI-093038

PATIENT
  Age: 72 Year
  Sex: Male

DRUGS (2)
  1. JARDIANCE [Suspect]
     Active Substance: EMPAGLIFLOZIN
     Indication: TYPE 2 DIABETES MELLITUS
     Dosage: 10 MG DAILY
     Route: 065
  2. METFORMIN [Concomitant]
     Active Substance: METFORMIN HYDROCHLORIDE
     Indication: TYPE 2 DIABETES MELLITUS
     Route: 065

REACTIONS (10)
  - Candida infection [Unknown]
  - Bladder diverticulum [Unknown]
  - Prostatomegaly [Unknown]
  - Urethral stenosis [Unknown]
  - Lichen sclerosus [Unknown]
  - Urinary retention [Unknown]
  - Residual urine volume increased [Unknown]
  - Impaired driving ability [Unknown]
  - Adhesion [Unknown]
  - Acute kidney injury [Unknown]
